FAERS Safety Report 5151788-6 (Version None)
Quarter: 2006Q4

REPORT INFORMATION
  Report Type: 
  Country: None (occurrence: None)
  Receive Date: 20061106
  Receipt Date: 20061030
  Transmission Date: 20070319
  Serious: Yes (Life-Threatening, Hospitalization)
  Sender: FDA-Public Use
  Company Number: RB-4275-2006

PATIENT
  Age: 55 Year
  Sex: Male
  Weight: 99.7913 kg

DRUGS (11)
  1. SUBOXONE [Suspect]
     Indication: DRUG DEPENDENCE
     Dosage: 3X SUBLINGUAL
     Route: 060
     Dates: start: 20061010, end: 20061010
  2. LEXAPRO [Concomitant]
  3. DOXAZOSIN MESYLATE [Concomitant]
  4. TOPRAL [Concomitant]
  5. ACTIQ [Concomitant]
  6. COLACE [Concomitant]
  7. SOMA [Concomitant]
  8. XANAX [Concomitant]
  9. MORPHINE SULFATE [Concomitant]
  10. NORCO [Concomitant]
  11. SEROQUEL [Concomitant]

REACTIONS (6)
  - BLOOD PRESSURE INCREASED [None]
  - HEART RATE INCREASED [None]
  - LOSS OF CONSCIOUSNESS [None]
  - OXYGEN SATURATION DECREASED [None]
  - TOXICOLOGIC TEST ABNORMAL [None]
  - VOMITING [None]
